FAERS Safety Report 4283116-2 (Version None)
Quarter: 2004Q1

REPORT INFORMATION
  Report Type: 
  Country: None (occurrence: None)
  Receive Date: 20040129
  Receipt Date: 20040116
  Transmission Date: 20041129
  Serious: Yes (Other)
  Sender: FDA-Public Use
  Company Number: 2004-DE-00280GD

PATIENT
  Age: 32 Year
  Sex: Male

DRUGS (1)
  1. METHOTREXATE [Suspect]
     Indication: NON-HODGKIN'S LYMPHOMA
     Dosage: IT
     Route: 038

REACTIONS (5)
  - ASTHENIA [None]
  - DYSARTHRIA [None]
  - HEADACHE [None]
  - NAUSEA [None]
  - NEUROTOXICITY [None]
